FAERS Safety Report 23863608 (Version 1)
Quarter: 2024Q2

REPORT INFORMATION
  Report Type: Spontaneous
  Country: CN (occurrence: CN)
  Receive Date: 20240516
  Receipt Date: 20240516
  Transmission Date: 20240716
  Serious: Yes (Other)
  Sender: FDA-Public Use
  Company Number: CN-ASTELLAS-2024US013724

PATIENT
  Sex: Male

DRUGS (1)
  1. HARNAL [Suspect]
     Active Substance: TAMSULOSIN HYDROCHLORIDE
     Indication: Product used for unknown indication
     Dosage: (TOOK IT BY ^ONE MOUTH^, AND THE SPECIFIC DOSAGE COULD NOT BE DECIPHERED)
     Route: 048
     Dates: start: 2018

REACTIONS (1)
  - Prostate cancer [Unknown]
